FAERS Safety Report 24804572 (Version 1)
Quarter: 2025Q1

REPORT INFORMATION
  Report Type: Spontaneous
  Country: IN (occurrence: IN)
  Receive Date: 20250103
  Receipt Date: 20250103
  Transmission Date: 20250409
  Serious: Yes (Death, Hospitalization, Other)
  Sender: MYLAN
  Company Number: IN-MYLANLABS-2024M1117698

PATIENT
  Age: 67 Year
  Sex: Male

DRUGS (8)
  1. SUNITINIB [Suspect]
     Active Substance: SUNITINIB
     Indication: Renal cell carcinoma
     Dosage: 1 DOSAGE FORM, QD; FOR TWO WEEKS FOLLOWED BY OFF FOR ONE WEEK; CYCLICAL
     Route: 065
     Dates: start: 2023
  2. PACLITAXEL [Suspect]
     Active Substance: PACLITAXEL
     Indication: Renal cell carcinoma
     Route: 042
     Dates: end: 2024
  3. DOXORUBICIN [Suspect]
     Active Substance: DOXORUBICIN
     Indication: Renal cell carcinoma
     Route: 042
     Dates: start: 2024
  4. CARBOPLATIN [Suspect]
     Active Substance: CARBOPLATIN
     Indication: Renal cell carcinoma
     Route: 042
     Dates: start: 2023, end: 2023
  5. GEMCITABINE [Suspect]
     Active Substance: GEMCITABINE
     Indication: Renal cell carcinoma
     Route: 042
     Dates: start: 2023, end: 2023
  6. SALINE [Suspect]
     Active Substance: SODIUM CHLORIDE
     Indication: Vehicle solution use
     Route: 042
     Dates: start: 2023, end: 2023
  7. SALINE [Suspect]
     Active Substance: SODIUM CHLORIDE
     Route: 042
     Dates: start: 2023, end: 2023
  8. ERYTHROPOIETIN [Concomitant]
     Active Substance: ERYTHROPOIETIN
     Indication: Anaemia
     Route: 065
     Dates: start: 2024

REACTIONS (5)
  - Drug ineffective [Fatal]
  - Disease progression [Fatal]
  - Renal impairment [Recovering/Resolving]
  - Oliguria [Recovering/Resolving]
  - Urinary tract infection [Recovering/Resolving]

NARRATIVE: CASE EVENT DATE: 20230101
